FAERS Safety Report 9812973 (Version 7)
Quarter: 2014Q3

REPORT INFORMATION
  Report Type: Spontaneous
  Country: US (occurrence: US)
  Receive Date: 20140113
  Receipt Date: 20140904
  Transmission Date: 20150326
  Serious: Yes (Hospitalization, Other)
  Sender: FDA-Public Use
  Company Number: US-AMGEN-USASP2014001257

PATIENT
  Age: 53 Year
  Sex: Male
  Weight: 85.26 kg

DRUGS (4)
  1. BARACLUDE [Concomitant]
     Active Substance: ENTECAVIR
     Indication: HEPATITIS B
     Dosage: UNK
     Route: 048
  2. MORPHINE [Concomitant]
     Active Substance: MORPHINE
     Dosage: UNK
  3. FENTANYL                           /00174602/ [Concomitant]
     Active Substance: FENTANYL
     Dosage: UNK
  4. ENBREL [Suspect]
     Active Substance: ETANERCEPT
     Indication: RHEUMATOID ARTHRITIS
     Dosage: UNK UNK, QWK
     Route: 058
     Dates: start: 201006, end: 201112

REACTIONS (35)
  - Impaired work ability [Unknown]
  - Tuberculosis [Unknown]
  - Gingival recession [Not Recovered/Not Resolved]
  - Feeling abnormal [Not Recovered/Not Resolved]
  - Dislocation of vertebra [Unknown]
  - Mood swings [Recovered/Resolved]
  - Muscle spasms [Recovered/Resolved]
  - Back pain [Not Recovered/Not Resolved]
  - Musculoskeletal disorder [Not Recovered/Not Resolved]
  - Amnesia [Unknown]
  - Gait disturbance [Unknown]
  - Blood pressure increased [Not Recovered/Not Resolved]
  - Mobility decreased [Unknown]
  - Tooth loss [Not Recovered/Not Resolved]
  - Tooth disorder [Unknown]
  - Depression [Unknown]
  - Dental caries [Not Recovered/Not Resolved]
  - Weight decreased [Unknown]
  - Head injury [Unknown]
  - Memory impairment [Unknown]
  - Hepatitis C [Not Recovered/Not Resolved]
  - Pain in extremity [Not Recovered/Not Resolved]
  - Decreased appetite [Not Recovered/Not Resolved]
  - Large intestine polyp [Recovered/Resolved]
  - Fall [Unknown]
  - Arthralgia [Unknown]
  - Oral neoplasm [Recovered/Resolved]
  - Onychomadesis [Unknown]
  - Arthritis [Unknown]
  - Hepatic cirrhosis [Not Recovered/Not Resolved]
  - Alopecia [Unknown]
  - Activities of daily living impaired [Not Recovered/Not Resolved]
  - Body height decreased [Unknown]
  - Hepatitis B [Not Recovered/Not Resolved]
  - Fatigue [Unknown]

NARRATIVE: CASE EVENT DATE: 2010
